FAERS Safety Report 8483206-4 (Version None)
Quarter: 2012Q3

REPORT INFORMATION
  Report Type: 
  Country: None (occurrence: None)
  Receive Date: 20120702
  Receipt Date: 20120625
  Transmission Date: 20120928
  Serious: Yes (Other)
  Sender: FDA-Public Use
  Company Number: US-PFIZER INC-2012152324

PATIENT
  Sex: Female
  Weight: 78.005 kg

DRUGS (2)
  1. CELEBREX [Suspect]
     Indication: BACK PAIN
     Dosage: 200 MG, 2X/DAY
     Dates: start: 20120606, end: 20120621
  2. CELEBREX [Suspect]
     Indication: SCIATICA
     Dosage: 100 MG, 2X/DAY
     Dates: start: 20120514, end: 20120605

REACTIONS (7)
  - DYSSTASIA [None]
  - PAIN IN EXTREMITY [None]
  - ERYTHEMA [None]
  - INSOMNIA [None]
  - ABASIA [None]
  - PRURITUS GENERALISED [None]
  - FEELING HOT [None]
